FAERS Safety Report 16632880 (Version 1)
Quarter: 2019Q3

REPORT INFORMATION
  Report Type: Spontaneous
  Country: US (occurrence: US)
  Receive Date: 20190725
  Receipt Date: 20190725
  Transmission Date: 20191004
  Serious: Yes (Other)
  Sender: FDA-Public Use
  Company Number: US-ALLERGAN-1929695US

PATIENT
  Sex: Male

DRUGS (1)
  1. IRON DEXTRAN UNK [Suspect]
     Active Substance: IRON DEXTRAN
     Indication: IRON DEFICIENCY ANAEMIA
     Dosage: UNK
     Route: 042

REACTIONS (4)
  - Flushing [Unknown]
  - Pruritus [Unknown]
  - Angioedema [Unknown]
  - Urticaria [Unknown]
